FAERS Safety Report 13336214 (Version 1)
Quarter: 2017Q1

REPORT INFORMATION
  Report Type: Spontaneous
  Country: US (occurrence: US)
  Receive Date: 20170315
  Receipt Date: 20170315
  Transmission Date: 20170428
  Serious: Yes (Other)
  Sender: FDA-Public Use
  Company Number: US-ROCHE-1890103

PATIENT
  Sex: Female

DRUGS (1)
  1. ACTEMRA [Suspect]
     Active Substance: TOCILIZUMAB
     Indication: RHEUMATOID ARTHRITIS
     Route: 058
     Dates: start: 20161011

REACTIONS (10)
  - Palpitations [Unknown]
  - Vomiting [Unknown]
  - Swelling face [Unknown]
  - Headache [Unknown]
  - Diarrhoea [Unknown]
  - Pain in extremity [Unknown]
  - Dizziness [Unknown]
  - Weight increased [Unknown]
  - Abdominal pain upper [Unknown]
  - Burning sensation [Unknown]
